FAERS Safety Report 23064925 (Version 1)
Quarter: 2023Q4

REPORT INFORMATION
  Report Type: Spontaneous
  Country: US (occurrence: US)
  Receive Date: 20231013
  Receipt Date: 20231013
  Transmission Date: 20240109
  Serious: No
  Sender: FDA-Public Use
  Company Number: US-PFIZER INC-202300314980

PATIENT
  Age: 75 Year
  Sex: Female

DRUGS (2)
  1. PACLITAXEL [Suspect]
     Active Substance: PACLITAXEL
     Indication: Ovarian cancer
     Dosage: 384 MG (ONCE)
     Dates: start: 20230908, end: 20230908
  2. PACLITAXEL [Suspect]
     Active Substance: PACLITAXEL
     Dosage: 384 MG (ONCE)
     Dates: start: 20230928, end: 20230928

REACTIONS (2)
  - Rash [Recovered/Resolved]
  - Dyspnoea [Unknown]

NARRATIVE: CASE EVENT DATE: 20230920
